FAERS Safety Report 7022238-X (Version None)
Quarter: 2010Q3

REPORT INFORMATION
  Report Type: 
  Country: None (occurrence: None)
  Receive Date: 20100930
  Receipt Date: 20100917
  Transmission Date: 20110219
  Serious: No
  Sender: FDA-Public Use
  Company Number: US-ELI_LILLY_AND_COMPANY-US201009005879

PATIENT
  Age: 55 Year
  Sex: Female

DRUGS (3)
  1. ZYPREXA [Suspect]
     Dosage: 10 MG, UNK
  2. DEPAKOTE [Concomitant]
  3. KLONOPIN [Concomitant]

REACTIONS (3)
  - CONTUSION [None]
  - HAEMORRHAGIC DIATHESIS [None]
  - PLATELET COUNT DECREASED [None]
